FAERS Safety Report 9910389 (Version 2)
Quarter: 2014Q1

REPORT INFORMATION
  Report Type: Spontaneous
  Country: FR (occurrence: FR)
  Receive Date: 20140219
  Receipt Date: 20140224
  Transmission Date: 20141002
  Serious: Yes (Life-Threatening, Hospitalization)
  Sender: FDA-Public Use
  Company Number: FR-PFIZER INC-2014044015

PATIENT
  Age: 51 Year
  Sex: Male

DRUGS (4)
  1. SOLU-MEDROL [Suspect]
     Indication: COLITIS
     Dosage: 2 MG/KG, DAILY
     Route: 042
     Dates: start: 20131216
  2. CORTANCYL [Suspect]
     Dosage: UNK
     Route: 048
     Dates: start: 20131225
  3. CEFTRIAXONE [Concomitant]
     Indication: COLITIS
     Dosage: UNK
     Route: 042
     Dates: start: 201312
  4. METRONIDAZOLE [Concomitant]
     Indication: COLITIS
     Dosage: UNK
     Route: 042
     Dates: start: 201312

REACTIONS (1)
  - Necrotising fasciitis [Recovered/Resolved with Sequelae]
